FAERS Safety Report 17357436 (Version 1)
Quarter: 2020Q1

REPORT INFORMATION
  Report Type: Spontaneous
  Country: US (occurrence: US)
  Receive Date: 20200131
  Receipt Date: 20200131
  Transmission Date: 20200409
  Serious: Yes (Other)
  Sender: FDA-Public Use
  Company Number: US-SEBELA IRELAND LIMITED-2020SEB00014

PATIENT
  Age: 76 Year
  Sex: Female
  Weight: 79.37 kg

DRUGS (8)
  1. NAFTIN [Suspect]
     Active Substance: NAFTIFINE HYDROCHLORIDE
     Indication: FUNGAL INFECTION
     Dosage: UNK, 2X/DAY APPLIED TO THE EXTERNAL VAGINAL, UNDER THE BREAST, AND AROUND THE STOMACH
     Route: 061
     Dates: start: 20200117, end: 20200120
  2. MIDODRINE [Concomitant]
     Active Substance: MIDODRINE
  3. UNSPECIFIED VITAMIN SUPPLEMENT [Concomitant]
  4. VITAMIN D SUPPLEMENT [Concomitant]
     Active Substance: VITAMIN D NOS
  5. FLUDROCORTISONE [Concomitant]
     Active Substance: FLUDROCORTISONE
  6. STOOL SOFTENER, ^DOCU SOMETHING^ [Concomitant]
  7. WARFARIN [Concomitant]
     Active Substance: WARFARIN
  8. ZETIA [Concomitant]
     Active Substance: EZETIMIBE

REACTIONS (2)
  - Off label use [Recovered/Resolved]
  - International normalised ratio increased [Recovering/Resolving]

NARRATIVE: CASE EVENT DATE: 20200117
